FAERS Safety Report 9793334 (Version 1)
Quarter: 2014Q1

REPORT INFORMATION
  Report Type: Spontaneous
  Country: US (occurrence: US)
  Receive Date: 20140102
  Receipt Date: 20140102
  Transmission Date: 20141002
  Serious: Yes (Other)
  Sender: FDA-Public Use
  Company Number: US-CELGENEUS-163-20785-13124559

PATIENT
  Sex: Male

DRUGS (3)
  1. THALOMID [Suspect]
     Indication: PLASMA CELL MYELOMA
     Dosage: 50 MILLIGRAM
     Route: 048
     Dates: start: 201008
  2. THALOMID [Suspect]
     Dosage: 100-150MG
     Route: 048
     Dates: start: 201209
  3. THALOMID [Suspect]
     Dosage: 50 MILLIGRAM
     Route: 048
     Dates: start: 201312, end: 2013

REACTIONS (2)
  - Hip fracture [Unknown]
  - Plasma cell myeloma [Unknown]
